FAERS Safety Report 5188158-0 (Version None)
Quarter: 2006Q4

REPORT INFORMATION
  Report Type: 
  Country: None (occurrence: None)
  Receive Date: 20061221
  Receipt Date: 20060506
  Transmission Date: 20070319
  Serious: Yes (Other)
  Sender: FDA-Public Use
  Company Number: DE-ROCHE-447408

PATIENT
  Age: 43 Year
  Sex: Female
  Weight: 68 kg

DRUGS (4)
  1. LARIAM [Suspect]
     Indication: MALARIA PROPHYLAXIS
     Route: 048
     Dates: start: 20060503
  2. ANAESTHETIC MEDICATION [Concomitant]
     Indication: DENTAL CARE
     Dosage: REPORTED AS ANAESTHESIA, LOCAL.
  3. FEMOSTON [Concomitant]
     Dosage: DRUG NAME REPORTED AS FEMOSTON 2/10. TAKEN FOR YEARS.
     Route: 048
     Dates: start: 20020615
  4. JODETTEN [Concomitant]
     Indication: PROPHYLAXIS
     Dosage: DRUG NAME REPORTED AS JODETTEN DEPOT. DOSAGE REGIMEN REPORTED AS 2X 0.5 WEEKLY.
     Route: 048
     Dates: start: 19960615

REACTIONS (8)
  - ASTHENIA [None]
  - COORDINATION ABNORMAL [None]
  - DIZZINESS [None]
  - HOT FLUSH [None]
  - HYPERTENSION [None]
  - NAUSEA [None]
  - TACHYCARDIA [None]
  - VOMITING [None]
